FAERS Safety Report 23251102 (Version 1)
Quarter: 2023Q4

REPORT INFORMATION
  Report Type: Spontaneous
  Country: US (occurrence: US)
  Receive Date: 20231201
  Receipt Date: 20231201
  Transmission Date: 20240110
  Serious: Yes (Death)
  Sender: FDA-Public Use
  Company Number: US-BAYER-2023A167175

PATIENT
  Age: 93 Year
  Sex: Male

DRUGS (2)
  1. DAROLUTAMIDE [Suspect]
     Active Substance: DAROLUTAMIDE
     Indication: Prostate cancer
     Dosage: 600 MG, BID
     Route: 048
     Dates: start: 202308, end: 202308
  2. DAROLUTAMIDE [Suspect]
     Active Substance: DAROLUTAMIDE
     Indication: Prostate cancer

REACTIONS (1)
  - Death [Fatal]
